FAERS Safety Report 8463032-2 (Version None)
Quarter: 2012Q2

REPORT INFORMATION
  Report Type: 
  Country: None (occurrence: None)
  Receive Date: 20120323
  Receipt Date: 20110912
  Transmission Date: 20120825
  Serious: Yes (Other)
  Sender: FDA-Public Use
  Company Number: 163-21880-11061804

PATIENT
  Age: 81 Year
  Sex: Female
  Weight: 77.7 kg

DRUGS (2)
  1. REVLIMID [Suspect]
     Indication: MULTIPLE MYELOMA
     Dosage: 5 MG, EVERY OTHER DAY FOR 21 DAYS, PO
     Route: 048
     Dates: start: 20080930, end: 20100108
  2. REVLIMID [Suspect]
     Indication: MULTIPLE MYELOMA
     Dosage: 5 MG, EVERY OTHER DAY FOR 21 DAYS, PO
     Route: 048
     Dates: start: 20110330

REACTIONS (2)
  - FATIGUE [None]
  - GENERAL PHYSICAL HEALTH DETERIORATION [None]
